FAERS Safety Report 11811856 (Version 2)
Quarter: 2015Q4

REPORT INFORMATION
  Report Type: Spontaneous
  Country: US (occurrence: US)
  Receive Date: 20151208
  Receipt Date: 20151208
  Transmission Date: 20160305
  Serious: No
  Sender: FDA-Public Use
  Company Number: US-BAYER-2015-479466

PATIENT
  Sex: Female

DRUGS (1)
  1. CLARITIN [Suspect]
     Active Substance: LORATADINE

REACTIONS (7)
  - Headache [None]
  - Swelling face [None]
  - Pyrexia [None]
  - Chills [None]
  - Blood pressure increased [None]
  - Paranasal sinus discomfort [None]
  - Hypoaesthesia [None]
